FAERS Safety Report 4898634-3 (Version None)
Quarter: 2006Q1

REPORT INFORMATION
  Report Type: 
  Country: None (occurrence: None)
  Receive Date: 20060127
  Receipt Date: 20060117
  Transmission Date: 20060701
  Serious: Yes (Hospitalization)
  Sender: FDA-Public Use
  Company Number: US-2006-000807

PATIENT
  Sex: Female

DRUGS (1)
  1. BETASERON [Suspect]
     Indication: MULTIPLE SCLEROSIS
     Dosage: MIU, EVERY 2D, SUBCUTANEOUS
     Route: 058
     Dates: start: 19960101, end: 19960101

REACTIONS (3)
  - DYSPNOEA [None]
  - LUNG INFECTION [None]
  - REFUSAL OF TREATMENT BY PATIENT [None]
